FAERS Safety Report 5221594-2 (Version None)
Quarter: 2007Q1

REPORT INFORMATION
  Report Type: 
  Country: None (occurrence: None)
  Receive Date: 20070129
  Receipt Date: 20070123
  Transmission Date: 20070707
  Serious: Yes (Hospitalization)
  Sender: FDA-Public Use
  Company Number: RB4866-2007

PATIENT
  Sex: Female
  Weight: 76.5 kg

DRUGS (5)
  1. SUBUTEX [Suspect]
     Route: 060
     Dates: start: 20060701
  2. SUBOXONE [Suspect]
     Route: 060
     Dates: start: 20060101, end: 20060701
  3. PROMETHAZINE [Concomitant]
     Indication: NAUSEA
     Dosage: PHENERGAN 25 MG ONE -TWO  PRN DAILY FOR NAUSEA
     Dates: start: 20060701
  4. ZOFRAN [Concomitant]
     Indication: NAUSEA
     Dosage: 4 MG PER DAY AS NEEDED
     Route: 048
     Dates: start: 20060701
  5. PROCARDIA [Concomitant]
     Indication: LABOUR PAIN
     Dates: start: 20070122

REACTIONS (4)
  - DRUG EXPOSURE DURING PREGNANCY [None]
  - LABOUR PAIN [None]
  - NAUSEA [None]
  - VOMITING [None]
